FAERS Safety Report 16683326 (Version 1)
Quarter: 2019Q3

REPORT INFORMATION
  Report Type: Spontaneous
  Country: US (occurrence: US)
  Receive Date: 20190808
  Receipt Date: 20190808
  Transmission Date: 20191004
  Serious: Yes (Other)
  Sender: FDA-Public Use
  Company Number: US-ALSI-201500063

PATIENT
  Age: 49 Year
  Sex: Male

DRUGS (1)
  1. NITROUS OXIDE. [Suspect]
     Active Substance: NITROUS OXIDE
     Indication: SUBSTANCE USE
     Route: 055

REACTIONS (3)
  - Road traffic accident [Recovered/Resolved]
  - Impaired driving ability [Recovered/Resolved]
  - Substance use [Recovered/Resolved]
